FAERS Safety Report 5339491-0 (Version None)
Quarter: 2007Q2

REPORT INFORMATION
  Report Type: 
  Country: None (occurrence: None)
  Receive Date: 20070525
  Receipt Date: 20070514
  Transmission Date: 20071010
  Serious: Yes (Other)
  Sender: FDA-Public Use
  Company Number: GB-1162950

PATIENT
  Age: 60 Year
  Sex: Female

DRUGS (2)
  1. TIMOLOL MALEATE(TIMOLOL MALEATE) 0.5% SOLUTION [Suspect]
     Indication: INTRAOCULAR PRESSURE INCREASED
     Dosage: EYE DROPS, SOLUTION OPHTHALMIC
     Route: 047
     Dates: start: 20030101
  2. DORZOLAMIDE[DORZOLAMIDE) [Concomitant]

REACTIONS (3)
  - CHOROIDAL DETACHMENT [None]
  - HYPOTONY OF EYE [None]
  - INTRAOCULAR PRESSURE DECREASED [None]
